FAERS Safety Report 6026627-1 (Version None)
Quarter: 2008Q4

REPORT INFORMATION
  Report Type: 
  Country: None (occurrence: None)
  Receive Date: 20081231
  Receipt Date: 20081222
  Transmission Date: 20090506
  Serious: Yes (Hospitalization, Other)
  Sender: FDA-Public Use
  Company Number: CHPA2008US23035

PATIENT
  Age: 76 Year
  Sex: Female

DRUGS (2)
  1. EXCEDRIN (MIGRAINE) [Suspect]
     Indication: HEADACHE
     Dosage: 3 DF, 5QD, ORAL
     Route: 048
     Dates: start: 19590101, end: 20081201
  2. ACETAMINOPHEN [Concomitant]

REACTIONS (6)
  - DRUG INEFFECTIVE [None]
  - GASTRIC ULCER [None]
  - INTESTINAL POLYP [None]
  - MOBILITY DECREASED [None]
  - OVERDOSE [None]
  - VISUAL IMPAIRMENT [None]
